FAERS Safety Report 25155534 (Version 3)
Quarter: 2025Q2

REPORT INFORMATION
  Report Type: Spontaneous
  Country: DE (occurrence: DE)
  Receive Date: 20250403
  Receipt Date: 20250518
  Transmission Date: 20250717
  Serious: Yes (Other)
  Sender: ESPERION THERAPEUTICS
  Company Number: DE-DAIICHI SANKYO EUROPE GMBH-DS-2025-133436-DE

PATIENT
  Sex: Female
  Weight: 66 kg

DRUGS (8)
  1. BEMPEDOIC ACID\EZETIMIBE [Suspect]
     Active Substance: BEMPEDOIC ACID\EZETIMIBE
     Indication: Hypercholesterolaemia
     Dosage: 1 DOSAGE FORM, QD (180/10 MG, DAILY)
     Route: 048
     Dates: start: 20240708, end: 20241001
  2. ASPIRIN [Concomitant]
     Active Substance: ASPIRIN
     Indication: Product used for unknown indication
     Dosage: 100 MG, QD
     Route: 065
  3. OLMESARTAN [Concomitant]
     Active Substance: OLMESARTAN
     Indication: Product used for unknown indication
     Dosage: 20 MG, BID
     Route: 065
  4. METOPROLOL [Concomitant]
     Active Substance: METOPROLOL
     Indication: Product used for unknown indication
     Dosage: 0.5 DOSAGE FORM, BID (95 MG, 1/2-0-1/2)
     Route: 065
  5. LERCANIDIPINE [Concomitant]
     Active Substance: LERCANIDIPINE
     Indication: Product used for unknown indication
     Dosage: 10 G, QD
     Route: 065
  6. ESCITALOPRAM [Concomitant]
     Active Substance: ESCITALOPRAM OXALATE
     Indication: Product used for unknown indication
     Dosage: 10 MG, QD
     Route: 065
  7. B12 ANKERMANN [Concomitant]
     Indication: Product used for unknown indication
     Dosage: UNK UNK, ONCE EVERY 2 WK
     Route: 065
  8. OPIPRAMOL [Concomitant]
     Active Substance: OPIPRAMOL
     Indication: Product used for unknown indication
     Dosage: 100 MG, QD
     Route: 065

REACTIONS (2)
  - Myalgia [Recovering/Resolving]
  - Muscle spasms [Recovering/Resolving]
